FAERS Safety Report 9531143 (Version 1)
Quarter: 2013Q3

REPORT INFORMATION
  Report Type: Spontaneous
  Country: US (occurrence: None)
  Receive Date: 20130916
  Receipt Date: 20130916
  Transmission Date: 20140515
  Serious: No
  Sender: FDA-Public Use
  Company Number: None

PATIENT
  Age: 46 Year
  Sex: Female
  Weight: 68.95 kg

DRUGS (1)
  1. PHENTERMINE [Suspect]
     Indication: FATIGUE
     Dosage: 1; ONCE DAILY
     Route: 048

REACTIONS (1)
  - Drug ineffective [None]
